FAERS Safety Report 7770283-9 (Version None)
Quarter: 2011Q3

REPORT INFORMATION
  Report Type: 
  Country: None (occurrence: None)
  Receive Date: 20110922
  Receipt Date: 20100518
  Transmission Date: 20111222
  Serious: No
  Sender: FDA-Public Use
  Company Number: US-ASTRAZENECA-2010SE22920

PATIENT
  Age: 52 Year
  Sex: Male
  Weight: 74.8 kg

DRUGS (2)
  1. SEROQUEL [Suspect]
     Route: 048
     Dates: start: 20100517, end: 20100517
  2. AMBIEN [Concomitant]

REACTIONS (4)
  - ASTHENIA [None]
  - ACCIDENTAL EXPOSURE [None]
  - SOMNOLENCE [None]
  - DIZZINESS [None]
